FAERS Safety Report 4305368-2 (Version None)
Quarter: 2004Q1

REPORT INFORMATION
  Report Type: 
  Country: None (occurrence: None)
  Receive Date: 20040226
  Receipt Date: 20030822
  Transmission Date: 20041129
  Serious: Yes (Hospitalization, Other)
  Sender: FDA-Public Use
  Company Number: US-BRISTOL-MYERS SQUIBB COMPANY-12363651

PATIENT
  Age: 76 Year
  Sex: Female
  Weight: 69 kg

DRUGS (6)
  1. PACLITAXEL [Suspect]
     Indication: BREAST CANCER
     Dosage: 200 MG/M2  PREVIOUS THERAPY DATES: 28-MAY-2003, 18-JUN-2003, 07-JUL-2003
     Route: 042
     Dates: start: 20030730, end: 20030730
  2. CARBOPLATIN [Suspect]
     Indication: BREAST CANCER
     Dosage: AUC 5  PREVIOUS THERAPY DATES: 28-MAY-2003, 18-JUN-2003, 07-JUL-2003
     Route: 042
     Dates: start: 20030730, end: 20030730
  3. DEXAMETHASONE [Concomitant]
     Route: 042
     Dates: start: 20030730
  4. DIPHENHYDRAMINE HCL [Concomitant]
     Route: 042
     Dates: start: 20030730
  5. RANITIDINE [Concomitant]
     Route: 042
     Dates: start: 20030730
  6. ZOFRAN [Concomitant]
     Route: 042
     Dates: start: 20030730

REACTIONS (5)
  - HAEMOGLOBIN DECREASED [None]
  - INFLUENZA [None]
  - NEUTROPHIL COUNT DECREASED [None]
  - PYREXIA [None]
  - WHITE BLOOD CELL COUNT DECREASED [None]
